FAERS Safety Report 5384431-1 (Version None)
Quarter: 2007Q3

REPORT INFORMATION
  Report Type: 
  Country: None (occurrence: None)
  Receive Date: 20070711
  Receipt Date: 20070702
  Transmission Date: 20080115
  Serious: Yes (Hospitalization, Other)
  Sender: FDA-Public Use
  Company Number: US-ASTRAZENECA-2007UW15759

PATIENT
  Age: 584 Month
  Sex: Female
  Weight: 61.4 kg

DRUGS (1)
  1. SEROQUEL [Suspect]
     Indication: SLEEP DISORDER
     Route: 048
     Dates: start: 20041201, end: 20051208

REACTIONS (4)
  - HEPATIC FAILURE [None]
  - OBESITY [None]
  - PANCREATITIS [None]
  - RENAL FAILURE [None]
